FAERS Safety Report 19510120 (Version 3)
Quarter: 2021Q3

REPORT INFORMATION
  Report Type: Spontaneous
  Country: US (occurrence: US)
  Receive Date: 20210708
  Receipt Date: 20210914
  Transmission Date: 20211014
  Serious: No
  Sender: FDA-Public Use
  Company Number: US-TEVA-2021-US-1928526

PATIENT
  Age: 33 Year
  Sex: Female

DRUGS (1)
  1. COPAXONE [Suspect]
     Active Substance: GLATIRAMER ACETATE
     Route: 065
     Dates: start: 20210615

REACTIONS (17)
  - Injection site urticaria [Recovering/Resolving]
  - Tremor [Unknown]
  - Migraine [Unknown]
  - Injection site mass [Recovering/Resolving]
  - Fatigue [Unknown]
  - Lack of injection site rotation [Unknown]
  - Injection site pruritus [Recovering/Resolving]
  - Disturbance in attention [Unknown]
  - Injection site inflammation [Unknown]
  - Fatigue [Unknown]
  - Pollakiuria [Unknown]
  - Injection site discolouration [Unknown]
  - Chills [Unknown]
  - Injection site erythema [Recovering/Resolving]
  - Photosensitivity reaction [Unknown]
  - Headache [Unknown]
  - Somnolence [Unknown]

NARRATIVE: CASE EVENT DATE: 2021
